FAERS Safety Report 12541220 (Version 7)
Quarter: 2019Q2

REPORT INFORMATION
  Report Type: Report from Study
  Country: ZA (occurrence: ZA)
  Receive Date: 20160708
  Receipt Date: 20190417
  Transmission Date: 20190711
  Serious: Yes (Other)
  Sender: FDA-Public Use
  Company Number: PHHY2016ZA093895

PATIENT
  Sex: Female

DRUGS (3)
  1. DESFERAL [Suspect]
     Active Substance: DEFEROXAMINE MESYLATE
     Indication: THALASSAEMIA
     Dosage: 6 VIALS 5-6 WEEK ADMINSTERED VIA PUMP
     Route: 065
     Dates: start: 1992
  2. EXJADE [Suspect]
     Active Substance: DEFERASIROX
     Indication: THALASSAEMIA
     Dosage: 2000 MG, QD
     Route: 065
     Dates: start: 20180916
  3. FERIPROX [Concomitant]
     Active Substance: DEFERIPRONE
     Indication: IRON OVERLOAD
     Dosage: 10 DF, QD
     Route: 065
     Dates: start: 2013

REACTIONS (3)
  - Serum ferritin increased [Not Recovered/Not Resolved]
  - Product prescribing error [Unknown]
  - Diabetes mellitus [Not Recovered/Not Resolved]

NARRATIVE: CASE EVENT DATE: 2010
